FAERS Safety Report 5302181-4 (Version None)
Quarter: 2007Q2

REPORT INFORMATION
  Report Type: 
  Country: None (occurrence: None)
  Receive Date: 20070419
  Receipt Date: 20070417
  Transmission Date: 20071010
  Serious: Yes (Other)
  Sender: FDA-Public Use
  Company Number: 2007CG00632

PATIENT
  Age: 55 Year
  Sex: Male

DRUGS (2)
  1. NAROPEINE [Suspect]
     Indication: LOCAL ANAESTHESIA
     Route: 053
     Dates: start: 20070201, end: 20070201
  2. PROGRAF [Interacting]
     Indication: LIVER TRANSPLANT

REACTIONS (3)
  - DRUG INTERACTION [None]
  - PARAESTHESIA [None]
  - SCIATICA [None]
